FAERS Safety Report 7591564-8 (Version None)
Quarter: 2011Q3

REPORT INFORMATION
  Report Type: 
  Country: None (occurrence: None)
  Receive Date: 20110701
  Receipt Date: 20110701
  Transmission Date: 20111222
  Serious: Yes (Hospitalization)
  Sender: FDA-Public Use
  Company Number: None

PATIENT

DRUGS (7)
  1. TEMSIROLIMUS [Suspect]
     Indication: DIFFUSE LARGE B-CELL LYMPHOMA
     Dosage: 25 MG, WEEKLY, IV
     Route: 042
     Dates: start: 20110616
  2. TEMSIROLIMUS [Suspect]
     Indication: DIFFUSE LARGE B-CELL LYMPHOMA
     Dosage: 25 MG, WEEKLY, IV
     Route: 042
     Dates: start: 20110623
  3. ACYCLOVIR [Interacting]
  4. CIPROFLOXACIN [Concomitant]
  5. VELCADE [Suspect]
     Indication: DIFFUSE LARGE B-CELL LYMPHOMA
     Dosage: 1.6 MG/M2,WEEKLY, IV
     Route: 042
     Dates: start: 20110616
  6. VELCADE [Suspect]
     Indication: DIFFUSE LARGE B-CELL LYMPHOMA
     Dosage: 1.6 MG/M2,WEEKLY, IV
     Route: 042
     Dates: start: 20110623
  7. SENOKOT [Concomitant]

REACTIONS (3)
  - DIARRHOEA [None]
  - NAUSEA [None]
  - VOMITING [None]
